FAERS Safety Report 23321325 (Version 3)
Quarter: 2024Q1

REPORT INFORMATION
  Report Type: Spontaneous
  Country: JP (occurrence: JP)
  Receive Date: 20231220
  Receipt Date: 20240118
  Transmission Date: 20240409
  Serious: Yes (Death)
  Sender: FDA-Public Use
  Company Number: JP-DSJP-DSJ-2023-148165

PATIENT
  Age: 8 Decade
  Sex: Female

DRUGS (1)
  1. ENHERTU [Suspect]
     Active Substance: FAM-TRASTUZUMAB DERUXTECAN-NXKI
     Indication: HER2 positive breast cancer
     Dosage: UNK
     Route: 041
     Dates: start: 20231024

REACTIONS (3)
  - Disease progression [Fatal]
  - Skin exfoliation [Unknown]
  - Pleural effusion [Unknown]

NARRATIVE: CASE EVENT DATE: 20231101
